FAERS Safety Report 17842392 (Version 3)
Quarter: 2020Q2

REPORT INFORMATION
  Report Type: Report from Study
  Country: None (occurrence: CA)
  Receive Date: 20200529
  Receipt Date: 20200609
  Transmission Date: 20200714
  Serious: Yes (Life-Threatening, Other)
  Sender: FDA-Public Use
  Company Number: CA-ABBVIE-20P-028-3424643-00

PATIENT
  Age: 2 Year
  Sex: Male
  Weight: 13 kg

DRUGS (22)
  1. MORPHINE [Concomitant]
     Active Substance: MORPHINE
     Indication: PAIN
     Route: 042
  2. VITAMIN D3 [Concomitant]
     Active Substance: CHOLECALCIFEROL
     Indication: PRODUCT USED FOR UNKNOWN INDICATION
     Dosage: PO/NG
  3. CASPOFUNGIN [Concomitant]
     Active Substance: CASPOFUNGIN
     Indication: ANTIFUNGAL PROPHYLAXIS
     Route: 042
  4. DESITIN-NYSTATIN-POLYSPORIN CREAM [Concomitant]
     Indication: PRODUCT USED FOR UNKNOWN INDICATION
  5. VENETOCLAX. [Suspect]
     Active Substance: VENETOCLAX
     Route: 050
     Dates: start: 20200510, end: 20200510
  6. ZINC OXIDE 40% W/W OINT DESITIN [Concomitant]
     Indication: SKIN DISORDER
     Dosage: APPLY WITH DIAPER CHANGE
  7. FLUOCINOLONE ACETONIDE OIL 0.01% [Concomitant]
     Indication: DRY SKIN
     Dosage: APPLY TO SCALP ONCE DAILY AS DIRECTE4D BY PHYSICIAN
  8. DUOLUBE OPHTHALMIC OINTMENT [Concomitant]
     Indication: PRODUCT USED FOR UNKNOWN INDICATION
  9. SEPTRA [Concomitant]
     Active Substance: SULFAMETHOXAZOLE\TRIMETHOPRIM
     Indication: ANTIFUNGAL PROPHYLAXIS
     Dosage: PO/NG, BID ON SAT/SUN
  10. VENETOCLAX. [Suspect]
     Active Substance: VENETOCLAX
     Indication: ACUTE MYELOID LEUKAEMIA REFRACTORY
     Route: 050
     Dates: start: 20200509, end: 20200509
  11. DIMENHYDRINATE. [Concomitant]
     Active Substance: DIMENHYDRINATE
     Indication: NAUSEA
     Dosage: 10 MG (1 ML) EVERY 6 HOURS AS NEEDED
     Route: 042
  12. VENETOCLAX. [Suspect]
     Active Substance: VENETOCLAX
     Dosage: 10 TABLETS OF 25 MG EACH
     Route: 050
     Dates: start: 20200511, end: 20200530
  13. HYDROCRTISONE CREAM 2.5% [Concomitant]
     Indication: DRY SKIN
     Dosage: APPLY TO BACK BID DAILY AS DIRECTE4D BY PHYSICIAN
  14. OXYBUTYNIN. [Concomitant]
     Active Substance: OXYBUTYNIN CHLORIDE
     Indication: DRY SKIN
     Dosage: PO/NG - 1 MG (1 ML) EVERY 8 HOURS
  15. MELATONIN [Concomitant]
     Active Substance: MELATONIN
     Indication: PRODUCT USED FOR UNKNOWN INDICATION
     Dosage: AT BEDTIME
     Route: 048
  16. POLYETHYLENE GLYCOL [Concomitant]
     Active Substance: POLYETHYLENE GLYCOLS
     Indication: PRODUCT USED FOR UNKNOWN INDICATION
  17. HYDROMORPHONE [Concomitant]
     Active Substance: HYDROMORPHONE
     Indication: PAIN
     Dosage: 1-8 MCG/KG/HR
     Route: 042
  18. KETAMINE [Concomitant]
     Active Substance: KETAMINE
     Indication: PAIN
     Route: 042
  19. DEXMEDETOMIDINE. [Concomitant]
     Active Substance: DEXMEDETOMIDINE
     Indication: PAIN
     Dosage: 0.2-0.6 MCG/KG/HR
     Route: 042
  20. ONDANSETRON [Concomitant]
     Active Substance: ONDANSETRON
     Indication: NAUSEA
     Route: 042
  21. DERMABASE CREAM [Concomitant]
     Indication: PRODUCT USED FOR UNKNOWN INDICATION
  22. CYTARABINE. [Concomitant]
     Active Substance: CYTARABINE
     Indication: PRODUCT USED FOR UNKNOWN INDICATION
     Dates: start: 20200512, end: 20200515

REACTIONS (3)
  - Colitis [Unknown]
  - Large intestine perforation [Unknown]
  - Pseudomonal bacteraemia [Unknown]

NARRATIVE: CASE EVENT DATE: 20200519
